FAERS Safety Report 19434445 (Version 1)
Quarter: 2021Q2

REPORT INFORMATION
  Report Type: Spontaneous
  Country: US (occurrence: US)
  Receive Date: 20210617
  Receipt Date: 20210617
  Transmission Date: 20210717
  Serious: No
  Sender: FDA-Public Use
  Company Number: US-ROCHE-2628062

PATIENT
  Sex: Female

DRUGS (2)
  1. ACTEMRA [Suspect]
     Active Substance: TOCILIZUMAB
     Indication: SPONDYLOARTHROPATHY
     Route: 058
     Dates: start: 20200527
  2. ACTEMRA [Suspect]
     Active Substance: TOCILIZUMAB
     Indication: RHEUMATOID ARTHRITIS

REACTIONS (11)
  - Asthenia [Unknown]
  - Nausea [Unknown]
  - Weight decreased [Unknown]
  - Somnolence [Unknown]
  - Tremor [Unknown]
  - Therapeutic product effect decreased [Unknown]
  - Hyperhidrosis [Unknown]
  - Flushing [Unknown]
  - Temperature intolerance [Unknown]
  - Irritability [Unknown]
  - Headache [Unknown]
